FAERS Safety Report 13798590 (Version 2)
Quarter: 2018Q1

REPORT INFORMATION
  Report Type: Report from Study
  Country: None (occurrence: DE)
  Receive Date: 20170727
  Receipt Date: 20180209
  Transmission Date: 20180508
  Serious: Yes (Death, Hospitalization, Other)
  Sender: FDA-Public Use
  Company Number: DE-ABBVIE-17K-062-2052696-00

PATIENT
  Sex: Female

DRUGS (6)
  1. ROACTEMRA [Concomitant]
     Active Substance: TOCILIZUMAB
     Indication: PRODUCT USED FOR UNKNOWN INDICATION
     Dates: start: 201411, end: 201603
  2. MTX (NON-ABBVIE) [Concomitant]
  3. MTX (NON-ABBVIE) [Concomitant]
  4. HUMIRA [Suspect]
     Active Substance: ADALIMUMAB
     Indication: RHEUMATOID ARTHRITIS
     Route: 058
     Dates: start: 201312, end: 201411
  5. MTX (NON-ABBVIE) [Concomitant]
     Indication: PRODUCT USED FOR UNKNOWN INDICATION
  6. MTX (NON-ABBVIE) [Concomitant]

REACTIONS (5)
  - Decubitus ulcer [Unknown]
  - Postoperative wound complication [Unknown]
  - Infection [Unknown]
  - Sepsis [Fatal]
  - Arthritis bacterial [Unknown]

NARRATIVE: CASE EVENT DATE: 20161015
